FAERS Safety Report 11012336 (Version 4)
Quarter: 2015Q3

REPORT INFORMATION
  Report Type: Spontaneous
  Country: US (occurrence: US)
  Receive Date: 20150411
  Receipt Date: 20150925
  Transmission Date: 20151125
  Serious: Yes (Other)
  Sender: FDA-Public Use
  Company Number: US-ASTRAZENECA-2015SE28727

PATIENT
  Age: 33031 Day
  Sex: Female
  Weight: 56.7 kg

DRUGS (15)
  1. BRILINTA [Suspect]
     Active Substance: TICAGRELOR
     Indication: ANGINA PECTORIS
     Route: 048
     Dates: start: 20150221
  2. BRILINTA [Suspect]
     Active Substance: TICAGRELOR
     Indication: MYOCARDIAL INFARCTION
     Route: 048
     Dates: start: 20150221
  3. METOPROLOL SUCCINATE. [Suspect]
     Active Substance: METOPROLOL SUCCINATE
     Indication: HYPERTENSION
     Route: 048
     Dates: start: 20150221
  4. JANUVIA [Concomitant]
     Active Substance: SITAGLIPTIN PHOSPHATE
     Indication: DIABETES MELLITUS
     Route: 048
  5. JANUVIA [Concomitant]
     Active Substance: SITAGLIPTIN PHOSPHATE
     Indication: DIABETES MELLITUS
     Route: 048
     Dates: start: 20150221
  6. HYDROCHLOROTHIAZIDE. [Concomitant]
     Active Substance: HYDROCHLOROTHIAZIDE
     Indication: DIURETIC THERAPY
     Route: 048
  7. HYDROCHLOROTHIAZIDE. [Concomitant]
     Active Substance: HYDROCHLOROTHIAZIDE
     Indication: HYPERTENSION
     Route: 048
  8. GLIPIZIDE. [Concomitant]
     Active Substance: GLIPIZIDE
     Indication: DIABETES MELLITUS
     Route: 048
  9. BRILINTA [Suspect]
     Active Substance: TICAGRELOR
     Indication: ACUTE CORONARY SYNDROME
     Route: 048
     Dates: start: 20150221
  10. METOPROLOL SUCCINATE. [Suspect]
     Active Substance: METOPROLOL SUCCINATE
     Indication: MYOCARDIAL INFARCTION
     Route: 048
     Dates: start: 20150221
  11. BRILINTA [Suspect]
     Active Substance: TICAGRELOR
     Indication: ANTICOAGULANT THERAPY
     Route: 048
     Dates: start: 20150221
  12. PRAVASTATIN [Concomitant]
     Active Substance: PRAVASTATIN\PRAVASTATIN SODIUM
     Indication: BLOOD CHOLESTEROL ABNORMAL
     Route: 048
  13. BABY ASPIRIN [Concomitant]
     Active Substance: ASPIRIN
     Indication: SUPPLEMENTATION THERAPY
     Route: 048
     Dates: start: 20150221
  14. BABY ASPIRIN [Concomitant]
     Active Substance: ASPIRIN
     Indication: MYOCARDIAL INFARCTION
     Route: 048
     Dates: start: 20150221
  15. PRAVASTATIN [Concomitant]
     Active Substance: PRAVASTATIN\PRAVASTATIN SODIUM
     Indication: BLOOD CHOLESTEROL ABNORMAL
     Route: 048

REACTIONS (15)
  - Decreased appetite [Unknown]
  - Condition aggravated [Unknown]
  - Feeling abnormal [Unknown]
  - Off label use [Unknown]
  - Epistaxis [Recovered/Resolved]
  - Weight decreased [Unknown]
  - Weight gain poor [Unknown]
  - Dyspnoea [Not Recovered/Not Resolved]
  - Fatigue [Unknown]
  - Contusion [Unknown]
  - Haemoptysis [Unknown]
  - Dysphonia [Unknown]
  - Dysphagia [Unknown]
  - Chest pain [Unknown]
  - Incorrect dose administered [Unknown]

NARRATIVE: CASE EVENT DATE: 20150601
